FAERS Safety Report 9440440 (Version 1)
Quarter: 2013Q3

REPORT INFORMATION
  Report Type: Spontaneous
  Country: BR (occurrence: BR)
  Receive Date: 20130805
  Receipt Date: 20130805
  Transmission Date: 20140515
  Serious: Yes (Other)
  Sender: FDA-Public Use
  Company Number: PHHY2013BR059853

PATIENT
  Age: 71 Year
  Sex: Female
  Weight: 78 kg

DRUGS (6)
  1. APRESOLIN [Suspect]
     Indication: HYPERTENSION
     Dosage: 50 MG, Q8H
     Route: 048
  2. APRESOLIN [Suspect]
     Dosage: 25 MG, 6QD
  3. METFORMIN [Suspect]
  4. ISOSORBIDE MONONITRATE [Suspect]
  5. NIMODIPINE [Suspect]
  6. RAMIPRIL [Suspect]

REACTIONS (3)
  - Blood pressure increased [Recovered/Resolved]
  - Malaise [Recovered/Resolved]
  - Decreased interest [Recovered/Resolved]
